FAERS Safety Report 23907575 (Version 2)
Quarter: 2024Q2

REPORT INFORMATION
  Report Type: Spontaneous
  Country: DE (occurrence: DE)
  Receive Date: 20240528
  Receipt Date: 20240611
  Transmission Date: 20240715
  Serious: Yes (Other)
  Sender: FDA-Public Use
  Company Number: DE-BAYER-2024A076851

PATIENT
  Sex: Female

DRUGS (2)
  1. EYLEA [Suspect]
     Active Substance: AFLIBERCEPT
     Indication: Age-related macular degeneration
     Dosage: 17/18 INJECTIONS FOR ABOUT 4-5 YEARS
  2. LUCENTIS [Concomitant]
     Active Substance: RANIBIZUMAB
     Indication: Age-related macular degeneration
     Dosage: UNK

REACTIONS (5)
  - Age-related macular degeneration [Unknown]
  - Blindness [Unknown]
  - Cerebral disorder [Unknown]
  - Erythropsia [Unknown]
  - Visual impairment [Not Recovered/Not Resolved]
